FAERS Safety Report 6509621-3 (Version None)
Quarter: 2009Q4

REPORT INFORMATION
  Report Type: 
  Country: None (occurrence: None)
  Receive Date: 20091216
  Receipt Date: 20091201
  Transmission Date: 20100525
  Serious: Yes (Other)
  Sender: FDA-Public Use
  Company Number: B0613778A

PATIENT
  Sex: 0

DRUGS (1)
  1. MELPHALAN HYDROCHLORIDE [Suspect]
     Indication: ACUTE MYELOID LEUKAEMIA
     Dosage: 200 MG/M2 INTRAVENOUS
     Route: 042

REACTIONS (3)
  - DRUG TOXICITY [None]
  - PNEUMONIA CYTOMEGALOVIRAL [None]
  - PNEUMONIA RESPIRATORY SYNCYTIAL VIRAL [None]
